FAERS Safety Report 25466959 (Version 1)
Quarter: 2025Q2

REPORT INFORMATION
  Report Type: Spontaneous
  Country: AU (occurrence: AU)
  Receive Date: 20250623
  Receipt Date: 20250623
  Transmission Date: 20250716
  Serious: Yes (Other)
  Sender: ALKEM
  Company Number: None

PATIENT

DRUGS (1)
  1. FINGOLIMOD [Suspect]
     Active Substance: FINGOLIMOD
     Indication: Product used for unknown indication
     Route: 065

REACTIONS (7)
  - Hemiparesis [Unknown]
  - Multiple sclerosis [Unknown]
  - Progressive multifocal leukoencephalopathy [Unknown]
  - Dysarthria [Unknown]
  - Paresis [Unknown]
  - Dizziness [Unknown]
  - Clumsiness [Unknown]
